FAERS Safety Report 9677471 (Version 2)
Quarter: 2013Q4

REPORT INFORMATION
  Report Type: Spontaneous
  Country: GB (occurrence: GB)
  Receive Date: 20131108
  Receipt Date: 20131108
  Transmission Date: 20140711
  Serious: Yes (Other)
  Sender: FDA-Public Use
  Company Number: PHFR2013GB005120

PATIENT
  Sex: Female

DRUGS (1)
  1. IMATINIB [Suspect]
     Dosage: UNK UKN, DAILY
     Route: 048

REACTIONS (2)
  - Palpitations [Not Recovered/Not Resolved]
  - Heart rate decreased [Recovering/Resolving]
